FAERS Safety Report 8255548-9 (Version None)
Quarter: 2012Q2

REPORT INFORMATION
  Report Type: 
  Country: None (occurrence: None)
  Receive Date: 20120403
  Receipt Date: 20120327
  Transmission Date: 20120825
  Serious: Yes (Hospitalization)
  Sender: FDA-Public Use
  Company Number: US-PFIZER INC-2012079404

PATIENT
  Sex: Male

DRUGS (1)
  1. VORICONAZOLE [Suspect]
     Dosage: 200 MG, TWICE A DAY FOR EIGHT WEEKS
     Route: 048

REACTIONS (1)
  - ATRIAL FIBRILLATION [None]
